FAERS Safety Report 8232410-9 (Version None)
Quarter: 2012Q1

REPORT INFORMATION
  Report Type: 
  Country: None (occurrence: None)
  Receive Date: 20120323
  Receipt Date: 20120316
  Transmission Date: 20120608
  Serious: Yes (Other)
  Sender: FDA-Public Use
  Company Number: US-CUBIST-2012S1000278

PATIENT
  Age: 4 Year
  Sex: Female

DRUGS (2)
  1. CUBICIN [Suspect]
     Indication: INFECTIOUS PERITONITIS
     Dosage: DOSE UNIT:U
  2. CUBICIN [Suspect]
     Indication: CELLULITIS
     Dosage: DOSE UNIT:U

REACTIONS (6)
  - RENAL FAILURE [None]
  - BACTERAEMIA [None]
  - PNEUMONIA [None]
  - TRANSPLANT REJECTION [None]
  - INFECTIOUS PERITONITIS [None]
  - BRONCHITIS [None]
